FAERS Safety Report 8192330-5 (Version None)
Quarter: 2012Q1

REPORT INFORMATION
  Report Type: 
  Country: None (occurrence: None)
  Receive Date: 20120307
  Receipt Date: 20120227
  Transmission Date: 20120608
  Serious: Yes (Hospitalization)
  Sender: FDA-Public Use
  Company Number: US-ASTRAZENECA-2012SE13675

PATIENT
  Age: 40 Year
  Sex: Female

DRUGS (4)
  1. SEROQUEL [Interacting]
     Route: 048
  2. PHENERGAN [Interacting]
     Route: 065
  3. AVONEX [Concomitant]
  4. TYSABRI [Suspect]
     Indication: MULTIPLE SCLEROSIS
     Route: 042
     Dates: start: 20110510

REACTIONS (12)
  - LABELLED DRUG-DRUG INTERACTION MEDICATION ERROR [None]
  - URINARY TRACT INFECTION [None]
  - CONCUSSION [None]
  - VERTIGO [None]
  - DIZZINESS [None]
  - FALL [None]
  - MULTIPLE SCLEROSIS RELAPSE [None]
  - NYSTAGMUS [None]
  - MUSCLE SPASMS [None]
  - VOMITING [None]
  - PHARYNGITIS STREPTOCOCCAL [None]
  - PNEUMONIA [None]
